FAERS Safety Report 5313920-0 (Version None)
Quarter: 2007Q2

REPORT INFORMATION
  Report Type: 
  Country: None (occurrence: None)
  Receive Date: 20070501
  Receipt Date: 20070427
  Transmission Date: 20071010
  Serious: Yes (Life-Threatening, Hospitalization)
  Sender: FDA-Public Use
  Company Number: DE-BRISTOL-MYERS SQUIBB COMPANY-13753595

PATIENT
  Age: 69 Year
  Sex: Male

DRUGS (6)
  1. CETUXIMAB [Suspect]
     Indication: NON-SMALL CELL LUNG CANCER
     Route: 042
     Dates: start: 20070405, end: 20070405
  2. CARBOPLATIN [Suspect]
     Indication: NON-SMALL CELL LUNG CANCER
     Route: 042
     Dates: start: 20070315, end: 20070315
  3. DOCETAXEL [Suspect]
     Indication: NON-SMALL CELL LUNG CANCER
     Route: 042
     Dates: start: 20070405, end: 20070405
  4. NOVALGIN [Concomitant]
     Indication: BACK PAIN
     Route: 048
  5. MAGNESIUM SULFATE [Concomitant]
     Route: 048
  6. WOBENZYM [Concomitant]

REACTIONS (1)
  - CEREBROVASCULAR ACCIDENT [None]
